FAERS Safety Report 20700243 (Version 1)
Quarter: 2022Q2

REPORT INFORMATION
  Report Type: Spontaneous
  Country: TH (occurrence: TH)
  Receive Date: 20220412
  Receipt Date: 20220412
  Transmission Date: 20220721
  Serious: Yes (Hospitalization)
  Sender: FDA-Public Use
  Company Number: TH-JNJFOC-20220364528

PATIENT

DRUGS (1)
  1. ACETAMINOPHEN [Suspect]
     Active Substance: ACETAMINOPHEN
     Indication: Product used for unknown indication
     Dosage: MEDIAN INGESTED ACETAMINOPHEN DOSE WAS 15 000 (RANGE 550075000) MG
     Route: 048

REACTIONS (4)
  - Liver injury [Unknown]
  - Hepatotoxicity [Unknown]
  - Vomiting [Unknown]
  - Overdose [Unknown]
